FAERS Safety Report 6357787-0 (Version None)
Quarter: 2009Q3

REPORT INFORMATION
  Report Type: 
  Country: None (occurrence: None)
  Receive Date: 20090911
  Receipt Date: 20090827
  Transmission Date: 20100115
  Serious: Yes (Hospitalization)
  Sender: FDA-Public Use
  Company Number: 2009AL004004

PATIENT
  Sex: Female

DRUGS (13)
  1. DIGOXIN [Suspect]
     Dosage: PO
     Route: 048
  2. RYTHMOL [Concomitant]
  3. AMIODARONE HCL [Concomitant]
  4. OXYCODONE [Concomitant]
  5. LASIX [Concomitant]
  6. POTASSIUM CHLORIDE [Concomitant]
  7. COREG [Concomitant]
  8. ASPIRIN [Concomitant]
  9. LISINOPRIL [Concomitant]
  10. LANTUS [Concomitant]
  11. GLYLBURIDE [Concomitant]
  12. VASERETIC [Concomitant]
  13. XALATAN [Concomitant]

REACTIONS (12)
  - ANAEMIA POSTOPERATIVE [None]
  - BRAIN NATRIURETIC PEPTIDE INCREASED [None]
  - CORONARY ARTERY DISEASE [None]
  - ECONOMIC PROBLEM [None]
  - EJECTION FRACTION DECREASED [None]
  - FLUID OVERLOAD [None]
  - HAEMORRHAGIC ANAEMIA [None]
  - ILL-DEFINED DISORDER [None]
  - MULTIPLE INJURIES [None]
  - PLEURAL EFFUSION [None]
  - PROTHROMBIN TIME PROLONGED [None]
  - SURGERY [None]
